FAERS Safety Report 19766705 (Version 1)
Quarter: 2021Q3

REPORT INFORMATION
  Report Type: Spontaneous
  Country: US (occurrence: US)
  Receive Date: 20210831
  Receipt Date: 20210831
  Transmission Date: 20211014
  Serious: Yes (Other)
  Sender: FDA-Public Use
  Company Number: US-ELTAMD-20210801908

PATIENT

DRUGS (1)
  1. ELTAMD UV CLEAR SPF46 [Suspect]
     Active Substance: OCTINOXATE\ZINC OXIDE
     Dosage: UNKNOWN DOSE
     Dates: start: 2021

REACTIONS (6)
  - Swelling face [Unknown]
  - Urticaria [Unknown]
  - Swelling [Unknown]
  - Skin burning sensation [Unknown]
  - Fatigue [Unknown]
  - Dehydration [Unknown]

NARRATIVE: CASE EVENT DATE: 20210819
